FAERS Safety Report 9665019 (Version 2)
Quarter: 2013Q4

REPORT INFORMATION
  Report Type: Spontaneous
  Country: GB (occurrence: GB)
  Receive Date: 20131101
  Receipt Date: 20131101
  Transmission Date: 20140711
  Serious: Yes (Hospitalization, Other)
  Sender: FDA-Public Use
  Company Number: GXKR2009GB04655

PATIENT
  Age: 64 Year
  Sex: Male

DRUGS (6)
  1. DICLOFENAC [Suspect]
     Indication: PAIN
     Route: 065
  2. ATENOLOL [Concomitant]
     Indication: HYPERTENSION
  3. DOXAZOSIN [Concomitant]
     Indication: HYPERTENSION
  4. LISINOPRIL [Concomitant]
     Indication: HYPERTENSION
  5. BENDROFLUMETHIAZIDE [Concomitant]
     Indication: HYPERTENSION
  6. SPIRONOLACTONE [Concomitant]

REACTIONS (11)
  - Pleural effusion [Unknown]
  - Lymphoedema [Unknown]
  - Ascites [Unknown]
  - Dehydration [Unknown]
  - Cardiac failure [Unknown]
  - Dyspnoea exertional [Unknown]
  - Orthopnoea [Unknown]
  - Dyspnoea paroxysmal nocturnal [Unknown]
  - Dilatation atrial [Unknown]
  - Left ventricular hypertrophy [Unknown]
  - Tricuspid valve incompetence [Unknown]
